FAERS Safety Report 23360971 (Version 1)
Quarter: 2024Q1

REPORT INFORMATION
  Report Type: Spontaneous
  Country: CN (occurrence: CN)
  Receive Date: 20240103
  Receipt Date: 20240103
  Transmission Date: 20240409
  Serious: Yes (Hospitalization)
  Sender: FDA-Public Use
  Company Number: CN-ROCHE-3294769

PATIENT
  Age: 66 Year
  Sex: Male
  Weight: 54 kg

DRUGS (32)
  1. CAPECITABINE [Suspect]
     Active Substance: CAPECITABINE
     Indication: HER2 positive gastric cancer
     Dosage: BID, D1-14?DAILY DOSE: 3000 MILLIGRAM
     Route: 048
     Dates: start: 20221110
  2. CAPECITABINE [Suspect]
     Active Substance: CAPECITABINE
     Indication: Oesophageal adenocarcinoma
     Dosage: BID, D1-14?DAILY DOSE: 3000 MILLIGRAM
     Route: 048
     Dates: start: 20221110
  3. CAPECITABINE [Suspect]
     Active Substance: CAPECITABINE
     Indication: HER2 positive gastric cancer
     Dosage: BID, D1-14?DAILY DOSE: 3000 MILLIGRAM
     Route: 048
     Dates: start: 20221110
  4. CAPECITABINE [Suspect]
     Active Substance: CAPECITABINE
     Indication: Oesophageal adenocarcinoma
     Dosage: BID, D1-14?DAILY DOSE: 3000 MILLIGRAM
     Route: 048
     Dates: start: 20221110
  5. ATEZOLIZUMAB [Suspect]
     Active Substance: ATEZOLIZUMAB
     Indication: HER2 positive gastric cancer
     Dosage: IV DRIP
     Route: 042
     Dates: start: 20221110
  6. ATEZOLIZUMAB [Suspect]
     Active Substance: ATEZOLIZUMAB
     Indication: Oesophageal adenocarcinoma
     Dosage: IV DRIP
     Route: 042
     Dates: start: 20221110
  7. TRASTUZUMAB [Suspect]
     Active Substance: TRASTUZUMAB
     Indication: Oesophageal adenocarcinoma
     Dosage: IV DRIP
     Route: 042
     Dates: start: 20221110
  8. TRASTUZUMAB [Suspect]
     Active Substance: TRASTUZUMAB
     Indication: HER2 positive gastric cancer
     Dosage: IV DRIP
     Route: 042
     Dates: start: 20221110
  9. OXALIPLATIN [Suspect]
     Active Substance: OXALIPLATIN
     Indication: Oesophageal adenocarcinoma
     Dosage: IV DRIP
     Route: 042
     Dates: start: 20221110
  10. OXALIPLATIN [Suspect]
     Active Substance: OXALIPLATIN
     Indication: HER2 positive gastric cancer
     Dosage: IV DRIP
     Route: 042
     Dates: start: 20221110
  11. RABEPRAZOLE SODIUM [Concomitant]
     Active Substance: RABEPRAZOLE SODIUM
     Dosage: SUBSEQUENT DOSE RECEIVED ON 27/APR2023, 07/APR2023, 18/MAY/2023, 09/JUN/2023, 28/JUN/2023
     Route: 042
     Dates: start: 20230222, end: 20230223
  12. BICYCLOL [Concomitant]
     Active Substance: BICYCLOL
  13. METHYLCOBALAMIN [Concomitant]
     Active Substance: METHYLCOBALAMIN
  14. LIDOCAINE HYDROCHLORIDE [Concomitant]
     Active Substance: LIDOCAINE HYDROCHLORIDE
     Dosage: SUBSEQUENT DOSE RECEIVED ON 27/APR/2023, 07/APR/2023, 18/MAY/2023, 09/JUN/2023, 28/JUN/2023
     Dates: start: 20230222, end: 20230222
  15. CEFOPERAZONE [Concomitant]
     Active Substance: CEFOPERAZONE
  16. PROMETHAZINE [Concomitant]
     Active Substance: PROMETHAZINE HYDROCHLORIDE
  17. BUCINNAZINE [Concomitant]
     Active Substance: BUCINNAZINE
  18. AMLODIPINE BESYLATE [Concomitant]
     Active Substance: AMLODIPINE BESYLATE
  19. INSULIN NOS [Concomitant]
     Active Substance: INSULIN NOS
  20. CALCIUM GLUCONATE [Concomitant]
     Active Substance: CALCIUM GLUCONATE
  21. SODIUM GLYCEROPHOSPHATE [Concomitant]
     Active Substance: SODIUM GLYCEROPHOSPHATE
  22. IBUPROFEN [Concomitant]
     Active Substance: IBUPROFEN
     Route: 048
     Dates: start: 20221219, end: 20221219
  23. IBUPROFEN [Concomitant]
     Active Substance: IBUPROFEN
     Route: 048
     Dates: start: 20221220, end: 20221220
  24. SODIUM POTASSIUM MAGNESIUM CALCIUM AND GLUCOSE [Concomitant]
     Route: 042
     Dates: start: 20230222, end: 20230309
  25. OMEPRAZOLE SODIUM [Concomitant]
     Active Substance: OMEPRAZOLE SODIUM
     Route: 042
     Dates: start: 20230224, end: 20230309
  26. Polyethylene glycol electrolytes (II) [Concomitant]
     Route: 048
     Dates: start: 20230223, end: 20230223
  27. CEFUROXIME SODIUM [Concomitant]
     Active Substance: CEFUROXIME SODIUM
     Route: 042
     Dates: start: 20230223, end: 20230223
  28. ONDANSETRON HYDROCHLORIDE [Concomitant]
     Active Substance: ONDANSETRON HYDROCHLORIDE
     Route: 042
     Dates: start: 20230224, end: 20230224
  29. POTASSIUM CHLORIDE [Concomitant]
     Active Substance: POTASSIUM CHLORIDE
     Route: 042
     Dates: start: 20230224, end: 20230224
  30. CARBON NANOPARTICLES [Concomitant]
     Route: 042
     Dates: start: 20230224, end: 20230224
  31. CEFOPERAZONE [Concomitant]
     Active Substance: CEFOPERAZONE
  32. OPRELVEKIN [Concomitant]
     Active Substance: OPRELVEKIN
     Route: 058
     Dates: start: 20230129, end: 20230131

REACTIONS (2)
  - Ventricular arrhythmia [Recovered/Resolved]
  - Hypertension [Recovered/Resolved]

NARRATIVE: CASE EVENT DATE: 20230224
